FAERS Safety Report 10932736 (Version 1)
Quarter: 2015Q1

REPORT INFORMATION
  Report Type: Spontaneous
  Country: US (occurrence: None)
  Receive Date: 20150318
  Receipt Date: 20150318
  Transmission Date: 20150721
  Serious: Yes (Other)
  Sender: FDA-Public Use
  Company Number: 001881260A

PATIENT
  Age: 68 Year
  Sex: Female

DRUGS (9)
  1. VITAMINS B12 [Concomitant]
  2. ANTIBIOTICS [Concomitant]
     Active Substance: UNSPECIFIED INGREDIENT
  3. MEANINGFUL BEAUTY CINDY CRAWFORD SKIN BRIGHTENING DECOLLETE AND NECK TREATMENT SPF 15 [Suspect]
     Active Substance: AVOBENZONE\OCTINOXATE\OCTISALATE\OXYBENZONE
     Route: 061
     Dates: start: 20150207, end: 20150215
  4. ALBUTEROL INHALER [Concomitant]
     Active Substance: ALBUTEROL
  5. OXYGEN. [Concomitant]
     Active Substance: OXYGEN
  6. CHEMOTHERAPY [Concomitant]
     Active Substance: UNSPECIFIED INGREDIENT
  7. CALCIUM [Concomitant]
     Active Substance: CALCIUM
  8. VITAMINS D3 [Concomitant]
  9. MEANINGFUL BEAUTY CINDY CRAWFORD ANTIOXIDANT SPF 20 UVA/UVB [Suspect]
     Active Substance: AVOBENZONE\OCTINOXATE\OCTISALATE\OXYBENZONE
     Route: 061
     Dates: start: 20150207, end: 20150215

REACTIONS (3)
  - Nausea [None]
  - Asthma [None]
  - Dyspnoea [None]

NARRATIVE: CASE EVENT DATE: 20150212
